FAERS Safety Report 10630981 (Version 1)
Quarter: 2014Q4

REPORT INFORMATION
  Report Type: Spontaneous
  Country: US (occurrence: US)
  Receive Date: 20141205
  Receipt Date: 20141205
  Transmission Date: 20150529
  Serious: No
  Sender: FDA-Public Use
  Company Number: US-BRISTOL-MYERS SQUIBB COMPANY-21453048

PATIENT
  Age: 79 Year
  Sex: Female
  Weight: 66.21 kg

DRUGS (1)
  1. ELIQUIS [Suspect]
     Active Substance: APIXABAN

REACTIONS (3)
  - Constipation [Unknown]
  - Abdominal pain upper [Unknown]
  - Wrong technique in drug usage process [Unknown]
